FAERS Safety Report 7440616-1 (Version None)
Quarter: 2011Q2

REPORT INFORMATION
  Report Type: 
  Country: None (occurrence: None)
  Receive Date: 20110427
  Receipt Date: 20110420
  Transmission Date: 20111010
  Serious: Yes (Death)
  Sender: FDA-Public Use
  Company Number: B0715062A

PATIENT
  Sex: Male
  Weight: 45 kg

DRUGS (7)
  1. ALKERAN [Suspect]
     Indication: STEM CELL TRANSPLANT
     Dosage: 100MGM2 PER DAY
     Route: 042
     Dates: start: 20090113, end: 20090114
  2. SOLDEM 3A [Concomitant]
     Route: 042
     Dates: start: 20090113, end: 20090116
  3. HEPARIN [Concomitant]
     Route: 042
     Dates: start: 20090113, end: 20090210
  4. THEOPHYLLINE [Concomitant]
     Dosage: 400MG PER DAY
     Route: 048
     Dates: end: 20090129
  5. KYTRIL [Concomitant]
     Route: 042
     Dates: start: 20090113, end: 20090116
  6. ONON [Concomitant]
     Dosage: 450MG PER DAY
     Route: 048
     Dates: end: 20090129
  7. MUCOSTA [Concomitant]
     Dosage: 300MG PER DAY
     Route: 048
     Dates: end: 20090129

REACTIONS (1)
  - EATING DISORDER [None]
